FAERS Safety Report 20971938 (Version 2)
Quarter: 2022Q2

REPORT INFORMATION
  Report Type: Report from Study
  Country: US (occurrence: US)
  Receive Date: 20220616
  Receipt Date: 20220618
  Transmission Date: 20220721
  Serious: No
  Sender: FDA-Public Use
  Company Number: US-SANOFI-01133213

PATIENT
  Age: 54 Year
  Sex: Female

DRUGS (12)
  1. DUPILUMAB [Suspect]
     Active Substance: DUPILUMAB
     Indication: Eczema
  2. DUPILUMAB [Suspect]
     Active Substance: DUPILUMAB
     Indication: Eczema
  3. DUPILUMAB [Suspect]
     Active Substance: DUPILUMAB
     Indication: Hypersensitivity
  4. DUPILUMAB [Suspect]
     Active Substance: DUPILUMAB
     Indication: Hypersensitivity
  5. DUPILUMAB [Suspect]
     Active Substance: DUPILUMAB
     Indication: Asthma
  6. DUPILUMAB [Suspect]
     Active Substance: DUPILUMAB
     Indication: Asthma
  7. DUPILUMAB [Suspect]
     Active Substance: DUPILUMAB
     Indication: Eczema
     Dosage: UNK
  8. DUPILUMAB [Suspect]
     Active Substance: DUPILUMAB
     Indication: Eczema
     Dosage: UNK
  9. DUPILUMAB [Suspect]
     Active Substance: DUPILUMAB
     Indication: Hypersensitivity
  10. DUPILUMAB [Suspect]
     Active Substance: DUPILUMAB
     Indication: Hypersensitivity
  11. DUPILUMAB [Suspect]
     Active Substance: DUPILUMAB
     Indication: Asthma
  12. DUPILUMAB [Suspect]
     Active Substance: DUPILUMAB
     Indication: Asthma

REACTIONS (3)
  - Injection site pain [Not Recovered/Not Resolved]
  - Screaming [Not Recovered/Not Resolved]
  - Product use in unapproved indication [Unknown]

NARRATIVE: CASE EVENT DATE: 20220605
